FAERS Safety Report 9632765 (Version 3)
Quarter: 2014Q1

REPORT INFORMATION
  Report Type: Spontaneous
  Country: US (occurrence: US)
  Receive Date: 20131018
  Receipt Date: 20140204
  Transmission Date: 20141002
  Serious: Yes (Other)
  Sender: FDA-Public Use
  Company Number: US-PFIZER INC-2013297336

PATIENT
  Age: 57 Year
  Sex: Female
  Weight: 63.04 kg

DRUGS (8)
  1. LYRICA [Suspect]
     Indication: NEUROPATHY PERIPHERAL
     Dosage: 150 MG, 3X/DAY
     Route: 048
     Dates: start: 2007
  2. LYRICA [Suspect]
     Indication: FIBROMYALGIA
     Dosage: (150MG IN MORNING, 150 MG IN AFTERNOON AND 200MG IN NIGHT), 3X/DAY
     Route: 048
  3. CLONIDINE [Concomitant]
     Dosage: UNK
  4. TRAZODONE [Concomitant]
     Indication: INSOMNIA
     Dosage: UNK
  5. TRAZODONE [Concomitant]
     Indication: HOT FLUSH
  6. PREMARIN [Concomitant]
     Indication: HOT FLUSH
     Dosage: UNK
  7. PREMPRO [Concomitant]
     Indication: HOT FLUSH
     Dosage: UNK
  8. CYMBALTA [Concomitant]
     Dosage: UNK

REACTIONS (13)
  - Vulval haemorrhage [Not Recovered/Not Resolved]
  - Vulval disorder [Not Recovered/Not Resolved]
  - Vulvovaginal discomfort [Not Recovered/Not Resolved]
  - Genital tract inflammation [Not Recovered/Not Resolved]
  - Neuritis [Not Recovered/Not Resolved]
  - Soft tissue disorder [Not Recovered/Not Resolved]
  - Stress [Unknown]
  - Dyskinesia [Unknown]
  - Memory impairment [Unknown]
  - Genital disorder female [Unknown]
  - Burning sensation [Unknown]
  - Pain [Unknown]
  - Nerve injury [Unknown]
